FAERS Safety Report 4875953-8 (Version None)
Quarter: 2005Q4

REPORT INFORMATION
  Report Type: 
  Country: None (occurrence: None)
  Receive Date: 20051205
  Receipt Date: 20050922
  Transmission Date: 20060501
  Serious: Yes (Hospitalization)
  Sender: FDA-Public Use
  Company Number: USA0509108930

PATIENT

DRUGS (1)
  1. ALIMTA [Suspect]

REACTIONS (1)
  - RASH [None]
